FAERS Safety Report 9867391 (Version 2)
Quarter: 2014Q1

REPORT INFORMATION
  Report Type: Spontaneous
  Country: FR (occurrence: FR)
  Receive Date: 20140204
  Receipt Date: 20140204
  Transmission Date: 20141002
  Serious: Yes (Other)
  Sender: FDA-Public Use
  Company Number: FR-ASTRAZENECA-2013SE82239

PATIENT
  Age: 24235 Day
  Sex: Male
  Weight: 75 kg

DRUGS (2)
  1. XEROQUEL [Suspect]
     Indication: BIPOLAR DISORDER
     Route: 048
     Dates: start: 201310, end: 201310
  2. BACLOFENE [Interacting]
     Indication: ALCOHOLISM
     Dates: start: 201308, end: 20131020

REACTIONS (3)
  - Drug interaction [Recovered/Resolved]
  - Priapism [Recovered/Resolved]
  - Insomnia [Recovered/Resolved]
